FAERS Safety Report 8812033 (Version 1)
Quarter: 2012Q4

REPORT INFORMATION
  Report Type: 
  Country: US (occurrence: US)
  Receive Date: 20120927
  Receipt Date: 20120927
  Transmission Date: 20130627
  Serious: Yes (Other)
  Sender: FDA-Public Use
  Company Number: PHHY2012US083087

PATIENT
  Age: 79 Year
  Sex: Female

DRUGS (1)
  1. BUFFERIN [Suspect]
     Indication: HEADACHE
     Dosage: 2 DF, PRN
     Route: 048
     Dates: start: 1972, end: 20120918

REACTIONS (1)
  - Asthma [Unknown]
